FAERS Safety Report 5578868-5 (Version None)
Quarter: 2007Q4

REPORT INFORMATION
  Report Type: 
  Country: None (occurrence: None)
  Receive Date: 20071228
  Receipt Date: 20071214
  Transmission Date: 20080405
  Serious: Yes (Hospitalization)
  Sender: FDA-Public Use
  Company Number: 2007-05777

PATIENT
  Age: 36 Year
  Sex: Female

DRUGS (1)
  1. CARISOPRODOL [Suspect]
     Indication: DRUG USE FOR UNKNOWN INDICATION
     Dosage: 25 TABLET, DAILY X SEVERAL MOS.
     Dates: start: 20070101, end: 20070101

REACTIONS (1)
  - DRUG WITHDRAWAL SYNDROME [None]
